FAERS Safety Report 9893832 (Version 1)
Quarter: 2014Q1

REPORT INFORMATION
  Report Type: Spontaneous
  Country: FR (occurrence: FR)
  Receive Date: 20140213
  Receipt Date: 20140213
  Transmission Date: 20141002
  Serious: Yes (Hospitalization)
  Sender: FDA-Public Use
  Company Number: FR-PFIZER INC-2014035236

PATIENT
  Age: 67 Year
  Sex: Male

DRUGS (5)
  1. TAHOR [Suspect]
     Indication: CEREBROVASCULAR ACCIDENT
     Dosage: UNK
     Route: 048
     Dates: start: 20131007, end: 20131212
  2. LAMICTAL [Suspect]
     Indication: EPILEPSY
     Dosage: UNK
     Route: 048
     Dates: start: 20131115, end: 20131203
  3. XARELTO [Suspect]
     Indication: CEREBROVASCULAR ACCIDENT
     Dosage: UNK
     Route: 048
     Dates: start: 20131108, end: 20131212
  4. COVERSYL [Concomitant]
     Dosage: UNK
     Dates: end: 20131007
  5. COVERSYL [Concomitant]
     Dosage: UNK
     Dates: start: 20131007

REACTIONS (1)
  - Drug reaction with eosinophilia and systemic symptoms [Recovered/Resolved]
